FAERS Safety Report 7915437-3 (Version None)
Quarter: 2011Q4

REPORT INFORMATION
  Report Type: 
  Country: None (occurrence: None)
  Receive Date: 20111115
  Receipt Date: 20111107
  Transmission Date: 20120403
  Serious: Yes (Disabling, Other)
  Sender: FDA-Public Use
  Company Number: PHHY2011GB74553

PATIENT
  Sex: Female

DRUGS (4)
  1. ASPIRIN [Concomitant]
     Dosage: 75 MG, QD
     Route: 048
  2. ALENDRONATE SODIUM [Concomitant]
  3. SIMVASTATIN [Suspect]
     Dosage: 40 MG, QD
     Route: 048
     Dates: end: 20110726
  4. PERINDOPRIL ERBUMINE [Concomitant]
     Dosage: 5 MG, DAILY
     Route: 048
     Dates: start: 20070101

REACTIONS (1)
  - HYPOKALAEMIA [None]
